FAERS Safety Report 10660652 (Version 6)
Quarter: 2015Q3

REPORT INFORMATION
  Report Type: Spontaneous
  Country: US (occurrence: US)
  Receive Date: 20141217
  Receipt Date: 20150817
  Transmission Date: 20151125
  Serious: No
  Sender: FDA-Public Use
  Company Number: US-GLAXOSMITHKLINE-A1089003A

PATIENT
  Sex: Male

DRUGS (2)
  1. VOTRIENT [Suspect]
     Active Substance: PAZOPANIB HYDROCHLORIDE
     Dosage: 800 MG, QD
     Route: 048
  2. VOTRIENT [Suspect]
     Active Substance: PAZOPANIB HYDROCHLORIDE
     Indication: NEOPLASM MALIGNANT
     Dosage: 800 MG, QD
     Route: 048
     Dates: start: 20140811

REACTIONS (10)
  - Nausea [Unknown]
  - Lethargy [Recovering/Resolving]
  - Weight decreased [Unknown]
  - Adverse drug reaction [Unknown]
  - Faeces soft [Unknown]
  - Hair colour changes [Unknown]
  - Diarrhoea [Unknown]
  - Drug dose omission [Unknown]
  - Fatigue [Recovering/Resolving]
  - Decreased appetite [Unknown]
